FAERS Safety Report 9908621 (Version 2)
Quarter: 2014Q1

REPORT INFORMATION
  Report Type: Spontaneous
  Country: JP (occurrence: JP)
  Receive Date: 20140219
  Receipt Date: 20140222
  Transmission Date: 20141002
  Serious: Yes (Death)
  Sender: FDA-Public Use
  Company Number: JP-ROCHE-1351709

PATIENT
  Age: 64 Year
  Sex: Female

DRUGS (2)
  1. ALTEPLASE [Suspect]
     Indication: ISCHAEMIC STROKE
     Route: 042
  2. HEPARIN [Suspect]
     Indication: PROPHYLAXIS
     Route: 042

REACTIONS (10)
  - Cardio-respiratory arrest [Fatal]
  - Coma [Fatal]
  - Cerebrovascular accident [Fatal]
  - Renal failure acute [Fatal]
  - Shock [Fatal]
  - Atrial thrombosis [Fatal]
  - Splenic infarction [Fatal]
  - Renal infarct [Fatal]
  - Embolism [Fatal]
  - Intestinal ischaemia [Fatal]
